FAERS Safety Report 8999905 (Version 1)
Quarter: 2013Q1

REPORT INFORMATION
  Report Type: Report from Study
  Country: US (occurrence: US)
  Receive Date: 20130102
  Receipt Date: 20130102
  Transmission Date: 20140127
  Serious: No
  Sender: FDA-Public Use
  Company Number: US-VERTEX PHARMACEUTICALS INC.-2012-026771

PATIENT
  Age: 53 Year
  Sex: Male
  Weight: 75 kg

DRUGS (7)
  1. VX-950 (TELAPREVIR) [Suspect]
     Indication: HEPATITIS C
     Dosage: UNK
     Route: 048
  2. PEGASYS [Suspect]
     Indication: HEPATITIS C
  3. RIBAVIRIN [Suspect]
     Indication: HEPATITIS C
     Dosage: 200 MG, UNK
  4. ALEVE [Concomitant]
  5. VITAMIN D /00107901/ [Concomitant]
  6. MULTIVITAMINS [Concomitant]
  7. MAGNESIUM [Concomitant]
     Dosage: 300 MG, UNK

REACTIONS (4)
  - Insomnia [Recovered/Resolved]
  - Back pain [Unknown]
  - Irritability [Unknown]
  - Haemoglobin decreased [Unknown]
